FAERS Safety Report 10011137 (Version 1)
Quarter: 2014Q1

REPORT INFORMATION
  Report Type: Spontaneous
  Country: US (occurrence: US)
  Receive Date: 20140314
  Receipt Date: 20140314
  Transmission Date: 20141002
  Serious: Yes (Hospitalization, Other)
  Sender: FDA-Public Use
  Company Number: US-BAYER-2014-037167

PATIENT
  Sex: Female

DRUGS (15)
  1. YAZ [Suspect]
  2. YASMIN [Suspect]
  3. AMBIEN [Concomitant]
     Dosage: 10 MG, UNK
  4. ERYDERM [Concomitant]
     Dosage: BEDTIME
  5. METFORMIN [Concomitant]
     Dosage: 500 MG,EVENING
  6. BUSPAR [Concomitant]
     Dosage: 15 MG, BID
  7. KLONOPIN [Concomitant]
     Dosage: 5 MG, EVERY NIGHT
  8. ASMANEX [Concomitant]
  9. VENTOLIN [Concomitant]
  10. XANAX [Concomitant]
     Dosage: 0.25 MG,1 THREE DAILY
  11. ZOLPIDEM [Concomitant]
     Dosage: 10 MG, UNK
  12. PROPRANOLOL [Concomitant]
     Dosage: 10 MG, UNK
     Dates: start: 20071101
  13. BUSPIRONE [Concomitant]
     Dosage: 15 MG, UNK
  14. FLUCONAZOLE [Concomitant]
     Dosage: 150 MG, UNK
     Dates: start: 20071112
  15. AZITHROMYCIN [Concomitant]
     Dosage: 250 MG, UNK
     Dates: start: 20071207

REACTIONS (2)
  - Deep vein thrombosis [None]
  - Pulmonary embolism [None]
